FAERS Safety Report 8220466-9 (Version None)
Quarter: 2012Q1

REPORT INFORMATION
  Report Type: 
  Country: None (occurrence: None)
  Receive Date: 20120320
  Receipt Date: 20120313
  Transmission Date: 20120608
  Serious: Yes (Other)
  Sender: FDA-Public Use
  Company Number: BR-US-EMD SERONO, INC.-7097743

PATIENT
  Sex: Female

DRUGS (5)
  1. INSULIN [Concomitant]
     Indication: DIABETES MELLITUS
  2. OXIBUTIN [Concomitant]
     Indication: PRODUCT USED FOR UNKNOWN INDICATION
  3. DORFLEX [Concomitant]
     Indication: PRODUCT USED FOR UNKNOWN INDICATION
  4. REBIF [Suspect]
     Indication: RELAPSING-REMITTING MULTIPLE SCLEROSIS
     Dates: start: 20110201
  5. TOPIRAMATE [Concomitant]
     Indication: PRODUCT USED FOR UNKNOWN INDICATION

REACTIONS (6)
  - SPEECH DISORDER [None]
  - MICTURITION URGENCY [None]
  - VENOUS ANGIOMA OF BRAIN [None]
  - FATIGUE [None]
  - INJECTION SITE ERYTHEMA [None]
  - MALAISE [None]
